FAERS Safety Report 5695787-4 (Version None)
Quarter: 2008Q2

REPORT INFORMATION
  Report Type: 
  Country: None (occurrence: None)
  Receive Date: 20080407
  Receipt Date: 20080324
  Transmission Date: 20081010
  Serious: Yes (Hospitalization, Other)
  Sender: FDA-Public Use
  Company Number: US-AMGEN-KDL269643

PATIENT
  Sex: Male

DRUGS (1)
  1. NEULASTA [Suspect]
     Indication: CHEMOTHERAPY

REACTIONS (12)
  - AMNESIA [None]
  - ANXIETY [None]
  - ASPHYXIA [None]
  - CONFUSIONAL STATE [None]
  - DISORIENTATION [None]
  - IMMUNE SYSTEM DISORDER [None]
  - PLATELET COUNT DECREASED [None]
  - RASH PRURITIC [None]
  - TREMOR [None]
  - URINARY INCONTINENCE [None]
  - VISUAL DISTURBANCE [None]
  - WEIGHT DECREASED [None]
